FAERS Safety Report 4445790-7 (Version None)
Quarter: 2004Q3

REPORT INFORMATION
  Report Type: 
  Country: None (occurrence: None)
  Receive Date: 20040908
  Receipt Date: 20040908
  Transmission Date: 20050211
  Serious: Yes (Other)
  Sender: FDA-Public Use
  Company Number: None

PATIENT
  Sex: Male
  Weight: 67.1324 kg

DRUGS (1)
  1. OXYCONTIN [Suspect]
     Indication: ARTHRALGIA
     Dosage: 800 MG PO BID          [2 1/2 YEARS AGO]
     Route: 048

REACTIONS (2)
  - PHARMACEUTICAL PRODUCT COMPLAINT [None]
  - VOMITING [None]
